FAERS Safety Report 8299154-9 (Version None)
Quarter: 2012Q2

REPORT INFORMATION
  Report Type: 
  Country: None (occurrence: None)
  Receive Date: 20120419
  Receipt Date: 20120410
  Transmission Date: 20120825
  Serious: Yes (Hospitalization)
  Sender: FDA-Public Use
  Company Number: DE-ROCHE-1059079

PATIENT
  Age: 60 Year
  Sex: Female

DRUGS (7)
  1. MABTHERA [Suspect]
     Dates: start: 20081204
  2. MABTHERA [Suspect]
     Dates: start: 20110810
  3. MABTHERA [Suspect]
     Indication: RHEUMATOID ARTHRITIS
     Dates: start: 20070710
  4. MABTHERA [Suspect]
     Dates: start: 20100809
  5. MABTHERA [Suspect]
     Dates: start: 20080128
  6. MABTHERA [Suspect]
     Dates: start: 20091202
  7. METHOTREXATE [Concomitant]
     Indication: RHEUMATOID ARTHRITIS
     Dates: start: 19960101, end: 20100401

REACTIONS (2)
  - THALAMIC INFARCTION [None]
  - HEMIPARESIS [None]
